FAERS Safety Report 15385678 (Version 1)
Quarter: 2018Q3

REPORT INFORMATION
  Report Type: Report from Study
  Country: US (occurrence: US)
  Receive Date: 20180914
  Receipt Date: 20180914
  Transmission Date: 20181010
  Serious: Yes (Disabling)
  Sender: FDA-Public Use
  Company Number: US-ASTELLAS-2018US040051

PATIENT
  Sex: Male

DRUGS (9)
  1. AMLODIPINE [Concomitant]
     Active Substance: AMLODIPINE BESYLATE
     Indication: HYPERTENSION
     Route: 048
     Dates: start: 2010
  2. ENZALUTAMIDE [Suspect]
     Active Substance: ENZALUTAMIDE
     Indication: HORMONE-REFRACTORY PROSTATE CANCER
     Route: 048
     Dates: start: 20160316, end: 20180826
  3. INDAPAMIDE. [Concomitant]
     Active Substance: INDAPAMIDE
     Indication: HYPERTENSION
     Route: 048
     Dates: start: 2010
  4. ASPIRIN. [Concomitant]
     Active Substance: ASPIRIN
     Indication: PRODUCT USED FOR UNKNOWN INDICATION
     Route: 048
     Dates: start: 2010
  5. GABAPENTIN. [Concomitant]
     Active Substance: GABAPENTIN
     Indication: PARAESTHESIA
     Route: 048
     Dates: start: 20170413, end: 20170925
  6. PRAVASTATIN. [Suspect]
     Active Substance: PRAVASTATIN
     Indication: BLOOD CHOLESTEROL INCREASED
     Route: 048
     Dates: start: 20160413
  7. METOPROLOL. [Concomitant]
     Active Substance: METOPROLOL
     Indication: HYPERTENSION
     Route: 048
     Dates: start: 2010
  8. CALTRATE                           /00944201/ [Concomitant]
     Active Substance: CALCIUM CARBONATE\CHOLECALCIFEROL
     Indication: SUPPLEMENTATION THERAPY
     Route: 048
     Dates: start: 2011
  9. HYDRALAZINE [Concomitant]
     Active Substance: HYDRALAZINE HYDROCHLORIDE
     Indication: HYPERTENSION
     Route: 048
     Dates: start: 2010

REACTIONS (1)
  - Optic nerve disorder [Not Recovered/Not Resolved]

NARRATIVE: CASE EVENT DATE: 20171023
